FAERS Safety Report 14019757 (Version 2)
Quarter: 2017Q4

REPORT INFORMATION
  Report Type: Spontaneous
  Country: FR (occurrence: FR)
  Receive Date: 20170928
  Receipt Date: 20171128
  Transmission Date: 20180321
  Serious: Yes (Congenital Anomaly)
  Sender: FDA-Public Use
  Company Number: FR-PFIZER INC-2017412104

PATIENT
  Sex: Female
  Weight: 2 kg

DRUGS (2)
  1. CYTOTEC [Suspect]
     Active Substance: MISOPROSTOL
     Indication: ABORTION INDUCED
     Dosage: 800 UG, TOTAL (2 DOSES OF 400 ?G MISOPROSTOL 2 HOURS APART)
     Route: 064
     Dates: start: 201701, end: 201701
  2. MIFEGYNE [Suspect]
     Active Substance: MIFEPRISTONE
     Indication: ABORTION INDUCED
     Dosage: 800 MG, TOTAL (600 MG THEN 200 MG AFTER VOMITING)
     Route: 064
     Dates: start: 201701, end: 201701

REACTIONS (3)
  - Premature baby [Unknown]
  - Maternal exposure during pregnancy [Not Recovered/Not Resolved]
  - Congenital nail disorder [Not Recovered/Not Resolved]

NARRATIVE: CASE EVENT DATE: 201701
